FAERS Safety Report 6155454-X (Version None)
Quarter: 2009Q2

REPORT INFORMATION
  Report Type: 
  Country: None (occurrence: None)
  Receive Date: 20090415
  Receipt Date: 20090408
  Transmission Date: 20091009
  Serious: Yes (Other)
  Sender: FDA-Public Use
  Company Number: PHHY2009JP13551

PATIENT
  Sex: Male

DRUGS (3)
  1. ZOMETA [Suspect]
     Indication: METASTASES TO BONE
     Dosage: 4 MG DILUTED TO 100 ML EVERY FOUR WEEKS
     Route: 042
     Dates: start: 20070926, end: 20080604
  2. CASODEX [Concomitant]
     Indication: PROSTATE CANCER
     Dosage: 80MG
     Route: 048
     Dates: start: 20070813, end: 20080827
  3. ZOLADEX [Concomitant]
     Indication: PROSTATE CANCER
     Dosage: UNK
     Route: 042
     Dates: start: 20070926

REACTIONS (2)
  - BLOOD UREA INCREASED [None]
  - SINUSITIS [None]
